FAERS Safety Report 20595646 (Version 1)
Quarter: 2022Q1

REPORT INFORMATION
  Report Type: Spontaneous
  Country: US (occurrence: None)
  Receive Date: 20220314
  Receipt Date: 20220314
  Transmission Date: 20220423
  Serious: Yes (Disabling)
  Sender: FDA-Public Use
  Company Number: None

PATIENT
  Age: 73 Year
  Sex: Female
  Weight: 73.8 kg

DRUGS (1)
  1. MYRBETRIQ [Suspect]
     Active Substance: MIRABEGRON
     Indication: Hypertonic bladder
     Dosage: OTHER QUANTITY : 30 TABLET(S);?FREQUENCY : DAILY;?
     Route: 048
     Dates: start: 20211014, end: 20220128

REACTIONS (2)
  - Diarrhoea [None]
  - Weight decreased [None]

NARRATIVE: CASE EVENT DATE: 20211110
